FAERS Safety Report 18025079 (Version 7)
Quarter: 2021Q3

REPORT INFORMATION
  Report Type: Spontaneous
  Country: US (occurrence: US)
  Receive Date: 20200715
  Receipt Date: 20210811
  Transmission Date: 20211014
  Serious: Yes (Hospitalization, Other)
  Sender: FDA-Public Use
  Company Number: US-PFIZER INC-2020270064

PATIENT
  Age: 58 Year
  Sex: Male

DRUGS (2)
  1. HYDROXYCHLOROQUINE [Concomitant]
     Active Substance: HYDROXYCHLOROQUINE
     Dosage: UNK
  2. XELJANZ XR [Suspect]
     Active Substance: TOFACITINIB CITRATE
     Indication: RHEUMATOID ARTHRITIS
     Dosage: 11 MG, 1X/DAY
     Route: 048
     Dates: start: 202006

REACTIONS (18)
  - Arthralgia [Unknown]
  - Therapeutic product effect decreased [Unknown]
  - Pain [Unknown]
  - Apathy [Unknown]
  - Nausea [Unknown]
  - Bone loss [Unknown]
  - Movement disorder [Unknown]
  - Exposure to SARS-CoV-2 [Unknown]
  - Depression [Unknown]
  - Fatigue [Unknown]
  - Malaise [Unknown]
  - Extra dose administered [Unknown]
  - Product dose omission issue [Unknown]
  - Arthropathy [Unknown]
  - Grip strength decreased [Unknown]
  - Weight decreased [Unknown]
  - Attention deficit hyperactivity disorder [Unknown]
  - Sensitivity to weather change [Unknown]
